FAERS Safety Report 25551157 (Version 1)
Quarter: 2025Q3

REPORT INFORMATION
  Report Type: Spontaneous
  Country: US (occurrence: US)
  Receive Date: 20250714
  Receipt Date: 20250714
  Transmission Date: 20251021
  Serious: No
  Sender: PFIZER
  Company Number: US-PFIZER INC-202500141355

PATIENT
  Age: 50 Year
  Sex: Female
  Weight: 97.07 kg

DRUGS (2)
  1. PAXLOVID [Suspect]
     Active Substance: NIRMATRELVIR\RITONAVIR
     Indication: COVID-19 treatment
     Route: 048
     Dates: start: 20250712, end: 20250712
  2. ALBUTEROL [Concomitant]
     Active Substance: ALBUTEROL
     Indication: Asthma
     Route: 045

REACTIONS (6)
  - Headache [Unknown]
  - Epistaxis [Unknown]
  - Chest discomfort [Unknown]
  - Head discomfort [Unknown]
  - Nasopharyngitis [Unknown]
  - Thinking abnormal [Unknown]
